FAERS Safety Report 12041350 (Version 1)
Quarter: 2016Q1

REPORT INFORMATION
  Report Type: Report from Study
  Country: US (occurrence: US)
  Receive Date: 20160208
  Receipt Date: 20160208
  Transmission Date: 20160526
  Serious: Yes (Disabling)
  Sender: FDA-Public Use
  Company Number: PHEH2016US002557

PATIENT
  Sex: Female

DRUGS (2)
  1. NEORAL [Suspect]
     Active Substance: CYCLOSPORINE
     Dosage: UNK
     Route: 065
     Dates: start: 2015
  2. NEORAL [Suspect]
     Active Substance: CYCLOSPORINE
     Indication: URTICARIA
     Dosage: UNK
     Route: 065
     Dates: end: 201507

REACTIONS (8)
  - Palpitations [Unknown]
  - Loss of consciousness [Unknown]
  - Malaise [Unknown]
  - Immunosuppression [Unknown]
  - Nausea [Unknown]
  - Blood pressure increased [Unknown]
  - Dizziness [Unknown]
  - Off label use [Unknown]
